FAERS Safety Report 6407631-8 (Version None)
Quarter: 2009Q4

REPORT INFORMATION
  Report Type: 
  Country: None (occurrence: None)
  Receive Date: 20091020
  Receipt Date: 20091007
  Transmission Date: 20100525
  Serious: Yes (Other)
  Sender: FDA-Public Use
  Company Number: PHHY2009BR43210

PATIENT
  Sex: Female

DRUGS (5)
  1. DIOVAN HCT [Suspect]
     Indication: CARDIAC DISORDER
     Dosage: 1 TABLET A DAY, IN THE MORNING
     Route: 048
  2. DIOVAN HCT [Suspect]
     Dosage: 160/25MG
  3. CRESTOR [Concomitant]
     Dosage: 10 MG (1 TABLET AT NIGHT, ORAL)
     Route: 048
  4. BUFFERIN [Concomitant]
     Dosage: 1 TABLET AT NIGHT, ORAL
  5. SELOZOK [Concomitant]
     Dosage: 1 TABLET IN THE MORNING, ORAL

REACTIONS (3)
  - DEMENTIA ALZHEIMER'S TYPE [None]
  - EMBOLISM [None]
  - MEMORY IMPAIRMENT [None]
